FAERS Safety Report 22124061 (Version 2)
Quarter: 2023Q2

REPORT INFORMATION
  Report Type: Spontaneous
  Country: US (occurrence: US)
  Receive Date: 20230322
  Receipt Date: 20230618
  Transmission Date: 20230722
  Serious: No
  Sender: FDA-Public Use
  Company Number: US-PROGENICS PHARMACEUTICALS, INC.-LMI-2023-00155

PATIENT
  Age: 69 Year
  Sex: Male
  Weight: 99.773 kg

DRUGS (3)
  1. PYLARIFY [Suspect]
     Active Substance: PIFLUFOLASTAT F-18
     Indication: Scan
     Dosage: 10.2 MILLICURIE
     Route: 042
     Dates: start: 20230130, end: 20230130
  2. PYLARIFY [Suspect]
     Active Substance: PIFLUFOLASTAT F-18
     Dosage: 10.1 MILLICURIE
     Route: 042
     Dates: start: 20230202, end: 20230202
  3. PRILOSEC [Concomitant]
     Active Substance: OMEPRAZOLE MAGNESIUM
     Indication: Product used for unknown indication
     Dosage: 20 MILLIGRAM CAPSULE (DELAYED RELEASE), QD
     Route: 048

REACTIONS (3)
  - Radioisotope scan abnormal [Recovered/Resolved with Sequelae]
  - Drug ineffective [Recovered/Resolved with Sequelae]
  - Radioisotope scan abnormal [Recovered/Resolved with Sequelae]

NARRATIVE: CASE EVENT DATE: 20230130
